FAERS Safety Report 15654036 (Version 1)
Quarter: 2018Q4

REPORT INFORMATION
  Report Type: Spontaneous
  Country: US (occurrence: US)
  Receive Date: 20181115
  Receipt Date: 20181115
  Transmission Date: 20190205
  Serious: No
  Sender: FDA-Public Use
  Company Number: None

PATIENT
  Age: 52 Year
  Sex: Male

DRUGS (1)
  1. GAMMAGARD [Suspect]
     Active Substance: HUMAN IMMUNOGLOBULIN G
     Route: 042
     Dates: start: 20181114

REACTIONS (3)
  - Intentional product use issue [None]
  - Wrong technique in product usage process [None]
  - Product prescribing issue [None]

NARRATIVE: CASE EVENT DATE: 20181114
